FAERS Safety Report 8282786-1 (Version None)
Quarter: 2012Q2

REPORT INFORMATION
  Report Type: 
  Country: None (occurrence: None)
  Receive Date: 20120413
  Receipt Date: 20120404
  Transmission Date: 20120825
  Serious: Yes (Hospitalization)
  Sender: FDA-Public Use
  Company Number: US-ROCHE-1052488

PATIENT
  Sex: Female
  Weight: 40.86 kg

DRUGS (3)
  1. COPEGUS [Suspect]
     Indication: PRODUCT USED FOR UNKNOWN INDICATION
  2. INCIVEK [Concomitant]
  3. PEGASYS [Suspect]
     Indication: PRODUCT USED FOR UNKNOWN INDICATION

REACTIONS (9)
  - OEDEMA PERIPHERAL [None]
  - CHILLS [None]
  - SKIN ULCER [None]
  - BLISTER [None]
  - MUSCULOSKELETAL DISORDER [None]
  - HALLUCINATION [None]
  - DRUG HYPERSENSITIVITY [None]
  - PYREXIA [None]
  - BLOOD BLISTER [None]
